FAERS Safety Report 16191703 (Version 2)
Quarter: 2019Q2

REPORT INFORMATION
  Report Type: Spontaneous
  Country: US (occurrence: US)
  Receive Date: 20190412
  Receipt Date: 20190617
  Transmission Date: 20190711
  Serious: No
  Sender: FDA-Public Use
  Company Number: US-TEVA-2019-US-1027203

PATIENT
  Age: 50 Year
  Sex: Female
  Weight: 73 kg

DRUGS (14)
  1. VALACYCLOVIR [Concomitant]
     Active Substance: VALACYCLOVIR HYDROCHLORIDE
  2. LORATADINE. [Concomitant]
     Active Substance: LORATADINE
  3. LORATIDINE [Concomitant]
     Active Substance: LORATADINE
     Indication: HYPERSENSITIVITY
     Route: 065
  4. VITAMIN C [Concomitant]
     Active Substance: ASCORBIC ACID
     Route: 065
  5. VITAMIN D [Concomitant]
     Active Substance: VITAMIN D NOS
     Dosage: 5000 IU VITAMIN D, MONDAY TO FRIDAY
     Route: 065
  6. AMPYRA [Concomitant]
     Active Substance: DALFAMPRIDINE
     Indication: MULTIPLE SCLEROSIS
     Route: 065
     Dates: start: 2011, end: 201605
  7. LEVOTHYROXINE. [Concomitant]
     Active Substance: LEVOTHYROXINE
     Indication: HYPOTHYROIDISM
     Route: 065
  8. FLUOXETINE [Concomitant]
     Active Substance: FLUOXETINE HYDROCHLORIDE
     Indication: ANXIETY
     Route: 065
  9. FLUOXETINE [Concomitant]
     Active Substance: FLUOXETINE HYDROCHLORIDE
     Route: 065
  10. AUBAGIO [Concomitant]
     Active Substance: TERIFLUNOMIDE
  11. TRAZODONE [Concomitant]
     Active Substance: TRAZODONE HYDROCHLORIDE
     Indication: SLEEP DISORDER
     Dosage: IF NEEDED
     Route: 065
  12. THYROXINE [Concomitant]
     Active Substance: LEVOTHYROXINE
  13. COPAXONE [Suspect]
     Active Substance: GLATIRAMER ACETATE
     Indication: MULTIPLE SCLEROSIS
     Dosage: DAILY
     Route: 058
     Dates: start: 20181108, end: 20181127
  14. VITAMIN D [Concomitant]
     Active Substance: VITAMIN D NOS
     Dosage: 10000 IU VITAMINE D, SATURDAY AND SUNDAY
     Route: 065

REACTIONS (12)
  - Injection site pain [Not Recovered/Not Resolved]
  - Injection site swelling [Not Recovered/Not Resolved]
  - Insomnia [Not Recovered/Not Resolved]
  - Fear [Not Recovered/Not Resolved]
  - Injection site bruising [Not Recovered/Not Resolved]
  - Injection site pruritus [Not Recovered/Not Resolved]
  - Injection site pain [Recovered/Resolved]
  - Injection site erythema [Not Recovered/Not Resolved]
  - Therapy change [Unknown]
  - Scab [Not Recovered/Not Resolved]
  - Scar [Not Recovered/Not Resolved]
  - Skin discolouration [Not Recovered/Not Resolved]

NARRATIVE: CASE EVENT DATE: 20181127
